FAERS Safety Report 25709432 (Version 1)
Quarter: 2025Q3

REPORT INFORMATION
  Report Type: Spontaneous
  Country: GB (occurrence: GB)
  Receive Date: 20250821
  Receipt Date: 20250821
  Transmission Date: 20251021
  Serious: Yes (Other)
  Sender: SANOFI AVENTIS
  Company Number: None

PATIENT
  Age: 69 Year
  Sex: Female
  Weight: 53 kg

DRUGS (5)
  1. ENOXAPARIN SODIUM [Suspect]
     Active Substance: ENOXAPARIN SODIUM
     Indication: Thrombosis prophylaxis
     Dosage: 40 MG, QD, SELF ADMINISTERED INJECTION 9PM  DAILY
     Dates: start: 20250730, end: 20250808
  2. ESTRADIOL [Concomitant]
     Active Substance: ESTRADIOL
     Indication: Hormone replacement therapy
     Dates: start: 20230801
  3. PROGESTERONE [Concomitant]
     Active Substance: PROGESTERONE
     Indication: Hormone replacement therapy
     Dates: start: 20230801
  4. ACETAMINOPHEN [Concomitant]
     Active Substance: ACETAMINOPHEN
     Indication: Procedural pain
     Dates: start: 20250730, end: 20250815
  5. CODEINE [Concomitant]
     Active Substance: CODEINE
     Indication: Procedural pain
     Dates: start: 20250730, end: 20250801

REACTIONS (1)
  - Procedural nausea [Recovered/Resolved]

NARRATIVE: CASE EVENT DATE: 20250801
